FAERS Safety Report 5598229-2 (Version None)
Quarter: 2008Q1

REPORT INFORMATION
  Report Type: 
  Country: None (occurrence: None)
  Receive Date: 20080122
  Receipt Date: 20080114
  Transmission Date: 20080703
  Serious: Yes (Hospitalization)
  Sender: FDA-Public Use
  Company Number: GBWYE676718MAY05

PATIENT
  Age: 49 Year
  Sex: Male

DRUGS (5)
  1. ACETAMINOPHEN [Suspect]
     Dosage: OVERDOSE OF 24 DOSEFORMS
     Route: 065
     Dates: start: 20020818
  2. SEROXAT [Suspect]
     Dosage: UNKNOWN
     Dates: start: 20020429
  3. ETHANOL [Suspect]
     Dosage: TOO MUCH TO DRINK
     Route: 048
     Dates: start: 20020818
  4. PREDNISOLONE [Suspect]
     Dosage: OVERDOSE, UP TO 10 DOSEFORMS
     Route: 065
     Dates: start: 20020818
  5. IBUPROFEN [Suspect]
     Dosage: 3-5 DOSEFORMS
     Route: 065
     Dates: start: 20020818

REACTIONS (1)
  - INTENTIONAL OVERDOSE [None]
